FAERS Safety Report 15131711 (Version 1)
Quarter: 2018Q4

REPORT INFORMATION
  Report Type: Spontaneous
  Country: US (occurrence: US)
  Receive Date: 20180711
  Receipt Date: 20180711
  Transmission Date: 20190204
  Serious: No
  Sender: FDA-Public Use
  Company Number: US-OPTINOSE US, INC.-US-2018OPT000097

PATIENT
  Age: 57 Year
  Sex: Male
  Weight: 86.17 kg

DRUGS (22)
  1. XHANCE [Suspect]
     Active Substance: FLUTICASONE PROPIONATE
     Dosage: 372 ?G, BID (ONE SPRAY IN EACH NOSTRIL TWICE DAILY)
     Route: 045
     Dates: start: 20180604, end: 20180608
  2. VITAMIN C [Concomitant]
     Active Substance: ASCORBIC ACID
     Indication: MENIERE^S DISEASE
     Dosage: 1000 MG, BID
     Route: 048
     Dates: start: 201802
  3. LIPOFLAVONOID                      /00457001/ [Concomitant]
     Indication: TINNITUS
     Dosage: 1 DF, QD
     Route: 048
     Dates: start: 201805
  4. OMEGA-3 FATTY ACIDS [Concomitant]
     Active Substance: OMEGA-3 FATTY ACIDS
     Indication: MENIERE^S DISEASE
     Dosage: 1000 MG, QD
     Route: 048
     Dates: start: 201802
  5. CALCIUM [Concomitant]
     Active Substance: CALCIUM
     Indication: TINNITUS
  6. MAGNESIUM [Concomitant]
     Active Substance: MAGNESIUM
     Indication: MENIERE^S DISEASE
     Dosage: UNK, QD
     Route: 048
     Dates: start: 201802
  7. XHANCE [Suspect]
     Active Substance: FLUTICASONE PROPIONATE
     Indication: SWELLING
     Dosage: 372 ?G, BID (TWO SPRAY IN EACH NOSTRIL TWICE DAILY)
     Route: 045
     Dates: start: 20180420, end: 20180604
  8. OMEGA-3 FATTY ACIDS [Concomitant]
     Active Substance: OMEGA-3 FATTY ACIDS
     Indication: TINNITUS
  9. XHANCE [Suspect]
     Active Substance: FLUTICASONE PROPIONATE
     Dosage: 372 ?G, BID (TWO SPRAY IN EACH NOSTRIL TWICE DAILY)
     Route: 045
     Dates: start: 20180611, end: 20180611
  10. XHANCE [Suspect]
     Active Substance: FLUTICASONE PROPIONATE
     Dosage: 372 ?G, BID (ONE SPRAY IN EACH NOSTRIL TWICE DAILY)
     Route: 045
     Dates: start: 20180612
  11. MAGNESIUM [Concomitant]
     Active Substance: MAGNESIUM
     Indication: TINNITUS
  12. TRIAMTERENE. [Concomitant]
     Active Substance: TRIAMTERENE
     Indication: MENIERE^S DISEASE
     Dosage: 35 MG, BID
     Route: 048
     Dates: start: 2016, end: 20180427
  13. ZYRTEC [Concomitant]
     Active Substance: CETIRIZINE HYDROCHLORIDE
     Indication: HYPERSENSITIVITY
     Dosage: 10 MG, QD
     Route: 048
     Dates: start: 2014, end: 20180427
  14. ACETYL L-CARNITINE                 /00949201/ [Concomitant]
     Indication: TINNITUS
  15. GINKGO BILOBA [Concomitant]
     Active Substance: GINKGO
     Indication: TINNITUS
  16. LIPOFLAVONOID                      /00457001/ [Concomitant]
     Indication: MENIERE^S DISEASE
     Dosage: 2 DF, TID
     Route: 048
     Dates: start: 201802, end: 201805
  17. VITAMIN C [Concomitant]
     Active Substance: ASCORBIC ACID
     Indication: TINNITUS
  18. ACETYL L-CARNITINE                 /00949201/ [Concomitant]
     Indication: MENIERE^S DISEASE
     Dosage: 500 MG, BID
     Route: 048
     Dates: start: 201802
  19. GRAPE SEED EXTRACT                 /01364603/ [Concomitant]
     Indication: MENIERE^S DISEASE
     Dosage: UNK, QD
     Route: 048
     Dates: start: 201802
  20. CALCIUM [Concomitant]
     Active Substance: CALCIUM
     Indication: MENIERE^S DISEASE
     Dosage: UNK, QD
     Route: 048
     Dates: start: 201802
  21. GINKGO BILOBA [Concomitant]
     Active Substance: GINKGO
     Indication: MENIERE^S DISEASE
     Dosage: UNK, BID
     Route: 048
     Dates: start: 201802
  22. GRAPE SEED EXTRACT                 /01364603/ [Concomitant]
     Indication: TINNITUS

REACTIONS (4)
  - Therapeutic response unexpected [Unknown]
  - Intentional underdose [Unknown]
  - Product use in unapproved indication [Unknown]
  - Product dose omission [Unknown]

NARRATIVE: CASE EVENT DATE: 20180420
